FAERS Safety Report 7252345-8 (Version None)
Quarter: 2011Q1

REPORT INFORMATION
  Report Type: 
  Country: None (occurrence: None)
  Receive Date: 20110129
  Receipt Date: 20100107
  Transmission Date: 20110831
  Serious: No
  Sender: FDA-Public Use
  Company Number: PR-ABBOTT-09P-131-0610035-00

PATIENT
  Sex: Female

DRUGS (3)
  1. HUMIRA [Suspect]
     Indication: RHEUMATOID ARTHRITIS
     Route: 058
     Dates: start: 20090505
  2. CALAN [Concomitant]
     Indication: HYPERTENSION
     Route: 048
  3. PRESIMIDONE (STUDY PROTOCOL DRUG) [Concomitant]
     Indication: PULMONARY FIBROSIS

REACTIONS (4)
  - INJECTION SITE SWELLING [None]
  - INJECTION SITE INFLAMMATION [None]
  - INJECTION SITE ERYTHEMA [None]
  - INJECTION SITE INDURATION [None]
